FAERS Safety Report 12682812 (Version 1)
Quarter: 2016Q3

REPORT INFORMATION
  Report Type: Spontaneous
  Country: IE (occurrence: IE)
  Receive Date: 20160825
  Receipt Date: 20160825
  Transmission Date: 20161109
  Serious: Yes (Other)
  Sender: FDA-Public Use
  Company Number: IE-PFIZER INC-2010059739

PATIENT
  Sex: Male

DRUGS (2)
  1. SUTENT [Suspect]
     Active Substance: SUNITINIB MALATE
     Dosage: 37.5 MG, CYCLIC (4/2 SCHEDULE)
  2. SUTENT [Suspect]
     Active Substance: SUNITINIB MALATE
     Indication: METASTATIC RENAL CELL CARCINOMA
     Dosage: 50 MG, CYCLIC (4/2 SCHEDULE)
     Dates: start: 20081001

REACTIONS (10)
  - Skin discolouration [Unknown]
  - Infection [Unknown]
  - Hair colour changes [Unknown]
  - Feeling cold [Unknown]
  - Hypertension [Unknown]
  - Erythema [Unknown]
  - Blister [Unknown]
  - Skin ulcer [Recovering/Resolving]
  - Palmar-plantar erythrodysaesthesia syndrome [Recovering/Resolving]
  - Pruritus [Unknown]
